FAERS Safety Report 15371284 (Version 1)
Quarter: 2018Q3

REPORT INFORMATION
  Report Type: Report from Study
  Country: US (occurrence: US)
  Receive Date: 20180911
  Receipt Date: 20180911
  Transmission Date: 20181010
  Serious: Yes (Death, Life-Threatening, Other)
  Sender: FDA-Public Use
  Company Number: US-TEVA-2018-US-952633

PATIENT
  Age: 53 Year
  Sex: Male

DRUGS (2)
  1. METFORMIN [Suspect]
     Active Substance: METFORMIN HYDROCHLORIDE
     Route: 065
  2. ATENOLOL. [Suspect]
     Active Substance: ATENOLOL
     Route: 065

REACTIONS (12)
  - Metabolic acidosis [Unknown]
  - Toxicity to various agents [Fatal]
  - Hypertension [Unknown]
  - Heart injury [Unknown]
  - Hypotension [Unknown]
  - Rhabdomyolysis [Unknown]
  - Electrocardiogram QRS complex prolonged [Unknown]
  - Hepatotoxicity [Unknown]
  - Acute kidney injury [Unknown]
  - Electrocardiogram QT prolonged [Unknown]
  - Ischaemia [Unknown]
  - Anion gap abnormal [Unknown]
